FAERS Safety Report 4924612-1 (Version None)
Quarter: 2006Q1

REPORT INFORMATION
  Report Type: 
  Country: None (occurrence: None)
  Receive Date: 20060222
  Receipt Date: 20060210
  Transmission Date: 20060701
  Serious: Yes (Hospitalization)
  Sender: FDA-Public Use
  Company Number: 2005-01-1574

PATIENT
  Age: 62 Year
  Sex: Male
  Weight: 68 kg

DRUGS (6)
  1. REBETOL [Suspect]
     Indication: HEPATITIS C
     Dosage: 800 MG ORAL
     Route: 048
     Dates: start: 20030507, end: 20031021
  2. INTRON A [Suspect]
     Indication: HEPATITIS C
     Dosage: 6 MIU QD-TIW* INTRAMUSCULAR
     Route: 030
     Dates: start: 20030507, end: 20030520
  3. INTRON A [Suspect]
     Indication: HEPATITIS C
     Dosage: 6 MIU QD-TIW* INTRAMUSCULAR
     Route: 030
     Dates: start: 20030522, end: 20031013
  4. INTRON A [Suspect]
     Indication: HEPATITIS C
     Dosage: 6 MIU QD-TIW* INTRAMUSCULAR
     Route: 030
     Dates: start: 20030507, end: 20031021
  5. INTRON A [Suspect]
     Indication: HEPATITIS C
     Dosage: 6 MIU QD-TIW* INTRAMUSCULAR
     Route: 030
     Dates: start: 20031016, end: 20031021
  6. NIVADIL (NILVADIPINE) [Concomitant]

REACTIONS (1)
  - PULMONARY TUBERCULOSIS [None]
